FAERS Safety Report 9924635 (Version 1)
Quarter: 2014Q1

REPORT INFORMATION
  Report Type: Spontaneous
  Country: CH (occurrence: None)
  Receive Date: 20140220
  Receipt Date: 20140220
  Transmission Date: 20141002
  Serious: Yes (Other)
  Sender: FDA-Public Use
  Company Number: SYM-2014-17359

PATIENT
  Age: 62 Year
  Sex: Male

DRUGS (6)
  1. BUPROPION HYDROCHLORIDE [Suspect]
     Indication: PRODUCT USED FOR UNKNOWN INDICATION
     Route: 048
     Dates: end: 20140121
  2. LITHIUM [Suspect]
     Indication: PRODUCT USED FOR UNKNOWN INDICATION
     Dosage: 1 IN 2D, ORAL
     Dates: start: 20140114, end: 20140121
  3. ARIPIPRAZOLE [Suspect]
     Indication: PRODUCT USED FOR UNKNOWN INDICATION
     Route: 048
     Dates: start: 20131218, end: 201401
  4. SERTRALINE [Suspect]
     Indication: PRODUCT USED FOR UNKNOWN INDICATION
     Route: 048
     Dates: end: 20140121
  5. BIPERIDEN [Suspect]
     Indication: PRODUCT USED FOR UNKNOWN INDICATION
     Dosage: 2MG, 1 IN 4D, ORAL
     Route: 048
     Dates: start: 20140113, end: 20140121
  6. LOSARTAN (LOSARTAN) (LOSARTAN) [Concomitant]

REACTIONS (3)
  - Serotonin syndrome [None]
  - Ataxia [None]
  - Dry mouth [None]
